FAERS Safety Report 5965577-3 (Version None)
Quarter: 2008Q4

REPORT INFORMATION
  Report Type: 
  Country: None (occurrence: None)
  Receive Date: 20081125
  Receipt Date: 20081112
  Transmission Date: 20090506
  Serious: Yes (Hospitalization, Other)
  Sender: FDA-Public Use
  Company Number: GB-CELGENEUS-167-C5013-07081153

PATIENT
  Sex: Male
  Weight: 86 kg

DRUGS (16)
  1. REVLIMID [Suspect]
     Route: 048
     Dates: start: 20070711
  2. REVLIMID [Suspect]
     Route: 048
     Dates: start: 20070808, end: 20070820
  3. REVLIMID [Suspect]
     Route: 048
     Dates: start: 20070926
  4. DEXAMETHASONE 0.5MG TAB [Suspect]
     Route: 065
     Dates: start: 20070711
  5. DEXAMETHASONE 0.5MG TAB [Suspect]
     Route: 065
     Dates: start: 20070808, end: 20070820
  6. DEXAMETHASONE 0.5MG TAB [Suspect]
     Route: 065
     Dates: start: 20070926
  7. PREDNISOLONE [Concomitant]
     Indication: POLYMYALGIA RHEUMATICA
     Route: 065
  8. INSULIN [Concomitant]
     Dosage: 2-3 UNITS
     Route: 051
  9. CLODRONATE [Concomitant]
     Indication: DRUG USE FOR UNKNOWN INDICATION
     Route: 065
  10. AMITRIPTYLINE HCL [Concomitant]
     Indication: DRUG USE FOR UNKNOWN INDICATION
     Route: 065
  11. CODEINE PHOSPHATE [Concomitant]
     Route: 065
  12. ACV [Concomitant]
     Indication: DRUG USE FOR UNKNOWN INDICATION
     Route: 065
  13. MORPHINE [Concomitant]
     Indication: DRUG USE FOR UNKNOWN INDICATION
     Route: 065
  14. PLATELETS [Concomitant]
     Indication: DRUG USE FOR UNKNOWN INDICATION
     Dosage: 2 BAGS
     Route: 051
     Dates: start: 20070801, end: 20070801
  15. WHOLE BLOOD [Concomitant]
     Indication: DRUG USE FOR UNKNOWN INDICATION
     Dosage: 4 UNITS
     Route: 051
     Dates: start: 20070801, end: 20070801
  16. NEULASTA [Concomitant]
     Indication: DRUG USE FOR UNKNOWN INDICATION
     Route: 050
     Dates: start: 20070801

REACTIONS (3)
  - ACUTE CORONARY SYNDROME [None]
  - CHEST PAIN [None]
  - HYPERGLYCAEMIA [None]
